FAERS Safety Report 23853639 (Version 1)
Quarter: 2024Q2

REPORT INFORMATION
  Report Type: Spontaneous
  Country: US (occurrence: US)
  Receive Date: 20240514
  Receipt Date: 20240514
  Transmission Date: 20240715
  Serious: No
  Sender: FDA-Public Use
  Company Number: US-JNJFOC-20240534682

PATIENT
  Age: 28 Year
  Sex: Male

DRUGS (6)
  1. SPRAVATO [Suspect]
     Active Substance: ESKETAMINE
     Indication: Depression
     Dates: start: 20240507
  2. SPRAVATO [Suspect]
     Active Substance: ESKETAMINE
     Indication: Post-traumatic stress disorder
  3. SPRAVATO [Suspect]
     Active Substance: ESKETAMINE
     Indication: Pain
  4. REMERON [Concomitant]
     Active Substance: MIRTAZAPINE
     Indication: Insomnia
  5. LYRICA [Concomitant]
     Active Substance: PREGABALIN
     Indication: Pain
  6. MECLIZINE HYDROCHLORIDE [Concomitant]
     Active Substance: MECLIZINE HYDROCHLORIDE
     Indication: Nausea

REACTIONS (6)
  - Nausea [Unknown]
  - Insomnia [Unknown]
  - Emotional disorder [Unknown]
  - Restlessness [Unknown]
  - Emotional disorder [Unknown]
  - Tachyphrenia [Unknown]
